FAERS Safety Report 8489022 (Version 7)
Quarter: 2012Q4

REPORT INFORMATION
  Report Type: 
  Country: US (occurrence: US)
  Receive Date: 20120402
  Receipt Date: 20120921
  Transmission Date: 20130627
  Serious: Yes (Hospitalization, Disabling, Other)
  Sender: FDA-Public Use
  Company Number: US-009507513-1203USA03473

PATIENT

DRUGS (4)
  1. FOSAMAX [Suspect]
     Indication: OSTEOPOROSIS
     Dosage: 70 mg, QW
     Route: 048
     Dates: start: 20080311
  2. FOSAMAX [Suspect]
     Dosage: UNK
     Route: 048
     Dates: start: 1996, end: 2010
  3. FOSAMAX [Suspect]
     Indication: OSTEOPOROSIS
     Dosage: 70 mg, QW
     Route: 048
     Dates: start: 20050426
  4. FOSAMAX PLUS D [Suspect]
     Indication: OSTEOPOROSIS
     Route: 048

REACTIONS (44)
  - Open reduction of fracture [Recovered/Resolved]
  - Femoral neck fracture [Recovered/Resolved]
  - Fall [Unknown]
  - Non-Hodgkin^s lymphoma [Unknown]
  - Anaemia of malignant disease [Unknown]
  - Hypothyroidism [Unknown]
  - Anxiety [Unknown]
  - Electrocardiogram change [Unknown]
  - Arthropathy [Unknown]
  - Spinal osteoarthritis [Unknown]
  - Spinal osteoarthritis [Unknown]
  - Sciatica [Unknown]
  - Spondylolisthesis [Unknown]
  - Limb asymmetry [Unknown]
  - Osteopenia [Unknown]
  - Cellulitis [Unknown]
  - Sleep disorder [Not Recovered/Not Resolved]
  - Hiatus hernia [Unknown]
  - Salivary gland resection [Unknown]
  - Biopsy lymph gland [Unknown]
  - Productive cough [Unknown]
  - Chronic obstructive pulmonary disease [Unknown]
  - Spinal compression fracture [Unknown]
  - Cataract operation [Unknown]
  - Intraocular lens implant [Unknown]
  - Blepharitis [Unknown]
  - Gastrooesophageal reflux disease [Recovered/Resolved]
  - Appendicectomy [Unknown]
  - Biopsy breast [Unknown]
  - Cardiomegaly [Unknown]
  - Chest pain [Unknown]
  - Nausea [Unknown]
  - Dizziness [Not Recovered/Not Resolved]
  - Granuloma [Unknown]
  - Hypertension [Unknown]
  - Nodule [Unknown]
  - Axillary mass [Unknown]
  - Fatigue [Unknown]
  - Upper respiratory tract infection [Not Recovered/Not Resolved]
  - Bronchitis [Not Recovered/Not Resolved]
  - Skin lesion [Unknown]
  - Squamous cell carcinoma of skin [Unknown]
  - Vaginal infection [Unknown]
  - Rotator cuff syndrome [Unknown]
